FAERS Safety Report 20571343 (Version 1)
Quarter: 2022Q1

REPORT INFORMATION
  Report Type: Spontaneous
  Country: US (occurrence: US)
  Receive Date: 20220309
  Receipt Date: 20220309
  Transmission Date: 20220423
  Serious: No
  Sender: FDA-Public Use
  Company Number: US-009507513-2202USA005469

PATIENT
  Age: 39 Year
  Sex: Male

DRUGS (2)
  1. KEYTRUDA [Suspect]
     Active Substance: PEMBROLIZUMAB
     Indication: Sarcoma
     Dosage: 400 MILLIGRAM, EVERY 6 WEEKS
  2. APIXABAN [Concomitant]
     Active Substance: APIXABAN
     Indication: Vena cava thrombosis
     Dosage: 5 MG TWICE DAILY

REACTIONS (1)
  - Product use in unapproved indication [Unknown]
